FAERS Safety Report 5780522-1 (Version None)
Quarter: 2008Q2

REPORT INFORMATION
  Report Type: 
  Country: None (occurrence: None)
  Receive Date: 20080620
  Receipt Date: 20080611
  Transmission Date: 20081010
  Serious: Yes (Hospitalization, Other)
  Sender: FDA-Public Use
  Company Number: BR-ABBOTT-08P-020-0434974-00

PATIENT
  Sex: Female
  Weight: 57 kg

DRUGS (11)
  1. HUMIRA [Suspect]
     Indication: INTESTINAL FISTULA
     Route: 058
     Dates: start: 20071101
  2. HUMIRA [Suspect]
     Indication: CROHN'S DISEASE
     Route: 058
  3. HUMIRA [Suspect]
     Route: 058
  4. HUMIRA [Suspect]
     Route: 058
     Dates: start: 20080201, end: 20080313
  5. WARFARIN SODIUM [Concomitant]
     Indication: DEEP VEIN THROMBOSIS
  6. PREDNISONE TAB [Concomitant]
     Indication: DRUG USE FOR UNKNOWN INDICATION
  7. METRONIDASOLE [Concomitant]
     Indication: DRUG USE FOR UNKNOWN INDICATION
  8. PANTOPRAZOLE SODIUM [Concomitant]
     Indication: DRUG USE FOR UNKNOWN INDICATION
  9. AZATHIOPRINE [Concomitant]
     Indication: DRUG USE FOR UNKNOWN INDICATION
  10. MESALAMINE [Concomitant]
     Indication: DRUG USE FOR UNKNOWN INDICATION
  11. CORTICOIDS [Concomitant]
     Indication: DRUG USE FOR UNKNOWN INDICATION

REACTIONS (10)
  - ABDOMINAL INFECTION [None]
  - ADVERSE EVENT [None]
  - ATAXIA [None]
  - CROHN'S DISEASE [None]
  - DIZZINESS [None]
  - FISTULA [None]
  - FREQUENT BOWEL MOVEMENTS [None]
  - GAIT DISTURBANCE [None]
  - GASTROINTESTINAL DISORDER [None]
  - NYSTAGMUS [None]
